FAERS Safety Report 13499255 (Version 1)
Quarter: 2017Q2

REPORT INFORMATION
  Report Type: Spontaneous
  Country: FR (occurrence: FR)
  Receive Date: 20170501
  Receipt Date: 20170501
  Transmission Date: 20170830
  Serious: Yes (Other)
  Sender: FDA-Public Use
  Company Number: FR-GLAXOSMITHKLINE-FR2017GSK059041

PATIENT
  Age: 70 Year
  Sex: Male

DRUGS (9)
  1. ISOPHANE INSULIN [Concomitant]
     Active Substance: INSULIN NOS
  2. DUPHALAC [Concomitant]
     Active Substance: LACTULOSE
  3. CALCIPARINE [Suspect]
     Active Substance: HEPARIN CALCIUM
     Indication: PHLEBITIS
     Dosage: 0.2 ML, BID
     Route: 058
     Dates: start: 20170405, end: 20170410
  4. KARDEGIC [Concomitant]
     Active Substance: ASPIRIN LYSINE
     Dosage: UNK
  5. ESOMEPRAZOLE [Concomitant]
     Active Substance: ESOMEPRAZOLE
  6. LAMICTAL [Suspect]
     Active Substance: LAMOTRIGINE
     Indication: EPILEPSY
     Dosage: 25 MG, BID
     Route: 048
     Dates: start: 20170319
  7. ATENOLOL. [Concomitant]
     Active Substance: ATENOLOL
  8. LASILIX [Concomitant]
     Active Substance: FUROSEMIDE
  9. TAHOR [Concomitant]
     Active Substance: ATORVASTATIN CALCIUM

REACTIONS (2)
  - Incorrect dose administered [Unknown]
  - Vascular purpura [Recovering/Resolving]

NARRATIVE: CASE EVENT DATE: 20170409
